FAERS Safety Report 6559817-X (Version None)
Quarter: 2010Q1

REPORT INFORMATION
  Report Type: 
  Country: None (occurrence: None)
  Receive Date: 20100129
  Receipt Date: 20090908
  Transmission Date: 20100710
  Serious: No
  Sender: FDA-Public Use
  Company Number: US-ABBOTT-09P-163-0596790-00

PATIENT
  Sex: Female
  Weight: 58.566 kg

DRUGS (3)
  1. HUMIRA [Suspect]
     Indication: RHEUMATOID ARTHRITIS
     Route: 058
     Dates: start: 20090301
  2. METHOTREXATE [Concomitant]
     Indication: RHEUMATOID ARTHRITIS
     Route: 050
  3. FOLIC ACID [Concomitant]
     Indication: MEDICAL DIET
     Route: 048

REACTIONS (4)
  - ARTHRALGIA [None]
  - DRUG DOSE OMISSION [None]
  - PAIN [None]
  - PYREXIA [None]
